FAERS Safety Report 6335904-6 (Version None)
Quarter: 2009Q3

REPORT INFORMATION
  Report Type: 
  Country: None (occurrence: None)
  Receive Date: 20090826
  Receipt Date: 20080724
  Transmission Date: 20100115
  Serious: Yes (Other)
  Sender: FDA-Public Use
  Company Number: 08H-163-0314655-00

PATIENT
  Age: 82 Year
  Sex: Male

DRUGS (3)
  1. LIDOCAINE 2% [Suspect]
     Indication: LOCAL ANAESTHESIA
     Dosage: TWICE, INJECTION
     Dates: start: 20080723, end: 20080723
  2. VALIUM [Concomitant]
  3. DARVOCET-N 100 [Concomitant]

REACTIONS (2)
  - CONVULSION [None]
  - LOSS OF CONSCIOUSNESS [None]
